FAERS Safety Report 6194344-3 (Version None)
Quarter: 2009Q2

REPORT INFORMATION
  Report Type: 
  Country: None (occurrence: None)
  Receive Date: 20090514
  Receipt Date: 20090511
  Transmission Date: 20091009
  Serious: Yes (Congenital Anomaly)
  Sender: FDA-Public Use
  Company Number: ADE2009-0602

PATIENT
  Sex: Male
  Weight: 3.5 kg

DRUGS (3)
  1. STAVUDINE [Suspect]
     Indication: HIV INFECTION
     Dosage: 60MG-DAILY-TRANSPLACENT., THROUGHOUT GESTATION
     Route: 064
  2. LAMIVUDINE [Suspect]
     Indication: HIV INFECTION
     Dosage: 300MG-DAILY-TRANSPLACENT., THROUGHOUT GESTATION
     Route: 064
  3. NEVIRAPINE [Suspect]
     Indication: HIV INFECTION
     Dosage: 400MG-DAILY-TRANSPLACENTAL,THROUGH GESTATION
     Route: 064

REACTIONS (3)
  - EXOMPHALOS [None]
  - LARGE FOR DATES BABY [None]
  - MATERNAL DRUGS AFFECTING FOETUS [None]
